FAERS Safety Report 5003623-4 (Version None)
Quarter: 2006Q2

REPORT INFORMATION
  Report Type: 
  Country: None (occurrence: None)
  Receive Date: 20060516
  Receipt Date: 20051031
  Transmission Date: 20061013
  Serious: Yes (Hospitalization)
  Sender: FDA-Public Use
  Company Number: US-MERCK-0511USA00265

PATIENT
  Age: 62 Year
  Sex: Female
  Weight: 110 kg

DRUGS (7)
  1. VIOXX [Suspect]
     Indication: ARTHRITIS
     Route: 048
     Dates: start: 20020801, end: 20040901
  2. GLUCOVANCE [Concomitant]
     Route: 065
  3. TOPROL-XL [Concomitant]
     Route: 065
     Dates: start: 20030101, end: 20050101
  4. LIPITOR [Concomitant]
     Route: 065
     Dates: start: 20030101, end: 20050101
  5. LOTENSIN [Concomitant]
     Route: 065
     Dates: start: 20030101, end: 20050101
  6. ASPIRIN [Concomitant]
     Route: 065
     Dates: start: 20030101, end: 20050101
  7. FUROSEMIDE [Concomitant]
     Route: 065

REACTIONS (1)
  - MYOCARDIAL INFARCTION [None]
